FAERS Safety Report 6007212-4 (Version None)
Quarter: 2008Q4

REPORT INFORMATION
  Report Type: 
  Country: None (occurrence: None)
  Receive Date: 20081217
  Receipt Date: 20080215
  Transmission Date: 20090506
  Serious: No
  Sender: FDA-Public Use
  Company Number: US-ASTRAZENECA-2008UW03141

PATIENT
  Age: 80 Year
  Sex: Male
  Weight: 97.5 kg

DRUGS (7)
  1. CRESTOR [Suspect]
     Indication: BLOOD CHOLESTEROL INCREASED
     Route: 048
     Dates: start: 20080201, end: 20080214
  2. DIOVAN [Concomitant]
  3. ACTOS [Concomitant]
  4. FUROSEMIDE [Concomitant]
  5. AMITRIPTYLINE HCL [Concomitant]
  6. ATENOLOL [Concomitant]
  7. AGGRENOX [Concomitant]

REACTIONS (2)
  - OEDEMA PERIPHERAL [None]
  - PAIN IN EXTREMITY [None]
